FAERS Safety Report 18288748 (Version 2)
Quarter: 2020Q3

REPORT INFORMATION
  Report Type: Spontaneous
  Country: PT (occurrence: PT)
  Receive Date: 20200921
  Receipt Date: 20200926
  Transmission Date: 20201103
  Serious: Yes (Hospitalization)
  Sender: FDA-Public Use
  Company Number: PT-ROCHE-2680018

PATIENT
  Sex: Female

DRUGS (3)
  1. PACLITAXEL. [Suspect]
     Active Substance: PACLITAXEL
     Indication: HER2 POSITIVE BREAST CANCER
     Route: 065
     Dates: start: 20200716
  2. PERJETA [Suspect]
     Active Substance: PERTUZUMAB
     Indication: HER2 POSITIVE BREAST CANCER
     Route: 042
     Dates: start: 20200716
  3. HERCEPTIN [Suspect]
     Active Substance: TRASTUZUMAB
     Indication: HER2 POSITIVE BREAST CANCER
     Route: 041
     Dates: start: 20200716

REACTIONS (2)
  - Interstitial lung disease [Recovering/Resolving]
  - Pituitary tumour benign [Unknown]

NARRATIVE: CASE EVENT DATE: 20200805
